FAERS Safety Report 14843163 (Version 2)
Quarter: 2018Q2

REPORT INFORMATION
  Report Type: Spontaneous
  Country: JP (occurrence: JP)
  Receive Date: 20180503
  Receipt Date: 20180503
  Transmission Date: 20180711
  Serious: Yes (Other)
  Sender: FDA-Public Use
  Company Number: PHHY2018JP071342

PATIENT
  Age: 13 Year
  Sex: Male

DRUGS (9)
  1. L-ASPARAGINASE [Suspect]
     Active Substance: ASPARAGINASE
     Dosage: 10000 IU/M2, RE-INDUCTION (DAYS 1, 3, 5, 8, 10, 12)
     Route: 065
  2. PREDNISOLONE. [Suspect]
     Active Substance: PREDNISOLONE
     Dosage: 40 MG/M2, SANCTUARY PHASE (DAYS 1-3, 15-17, 29-31)
     Route: 065
  3. L-ASPARAGINASE [Suspect]
     Active Substance: ASPARAGINASE
     Indication: ACUTE LYMPHOCYTIC LEUKAEMIA
     Dosage: 10000 IU/M2, INDUCTION (DAYS 9, 11, 13, 16, 18, 20)
     Route: 065
  4. PREDNISOLONE. [Suspect]
     Active Substance: PREDNISOLONE
     Dosage: 40 MG/M2, MAINTENANCE PHASE (DAYS 29-42, 85-89)
     Route: 065
  5. PREDNISOLONE. [Suspect]
     Active Substance: PREDNISOLONE
     Dosage: 40 MG/M2, RE-INDUCTION PHASE (DAYS 1-14)
     Route: 065
  6. L-ASPARAGINASE [Suspect]
     Active Substance: ASPARAGINASE
     Dosage: 10000 IU/M2, MAINTENANCE (DAYS29, 36, 43, 85, 92, 99)
     Route: 065
  7. PREDNISOLONE. [Suspect]
     Active Substance: PREDNISOLONE
     Indication: ACUTE LYMPHOCYTIC LEUKAEMIA
     Dosage: 40 MG/M2, INDUCTION (DAYS 8-28)
     Route: 065
  8. L-ASPARAGINASE [Suspect]
     Active Substance: ASPARAGINASE
     Dosage: 20000 IU/M2, SANCTUARY PHASE (DAYS 3, 17, 31)
     Route: 065
  9. DEXAMETHASONE. [Suspect]
     Active Substance: DEXAMETHASONE
     Indication: ACUTE LYMPHOCYTIC LEUKAEMIA
     Dosage: 10 MG/M2, INDUCTION PHASE (DAYS 1-7)
     Route: 065

REACTIONS (1)
  - Osteonecrosis [Unknown]
